FAERS Safety Report 11282709 (Version 2)
Quarter: 2015Q3

REPORT INFORMATION
  Report Type: Spontaneous
  Country: GB (occurrence: GB)
  Receive Date: 20150720
  Receipt Date: 20150918
  Transmission Date: 20151125
  Serious: Yes (Death, Hospitalization)
  Sender: FDA-Public Use
  Company Number: GB-JNJFOC-20150708022

PATIENT
  Age: 64 Year
  Sex: Female
  Weight: 65 kg

DRUGS (1)
  1. REOPRO [Suspect]
     Active Substance: ABCIXIMAB
     Indication: PERCUTANEOUS CORONARY INTERVENTION
     Dosage: AS PER WEIGHT
     Route: 042
     Dates: start: 20141229, end: 20141230

REACTIONS (4)
  - Cardiac arrest [Fatal]
  - Haemoptysis [Not Recovered/Not Resolved]
  - Malaise [Not Recovered/Not Resolved]
  - Pulmonary haemorrhage [Fatal]

NARRATIVE: CASE EVENT DATE: 20141229
